FAERS Safety Report 6208196-6 (Version None)
Quarter: 2009Q2

REPORT INFORMATION
  Report Type: 
  Country: None (occurrence: None)
  Receive Date: 20090522
  Receipt Date: 20090507
  Transmission Date: 20091009
  Serious: Yes (Congenital Anomaly)
  Sender: FDA-Public Use
  Company Number: 2009S1008088

PATIENT

DRUGS (3)
  1. ROPINIROLE [Suspect]
     Indication: PARKINSON'S DISEASE
     Dosage: 7 MG;3 TIMES A DAY;TRANSPLACENTAL
     Route: 064
     Dates: start: 20060601
  2. DOMPERIDONE [Concomitant]
  3. OXAZEPAM [Concomitant]

REACTIONS (2)
  - CLEFT PALATE [None]
  - MATERNAL DRUGS AFFECTING FOETUS [None]
